FAERS Safety Report 17258480 (Version 2)
Quarter: 2020Q1

REPORT INFORMATION
  Report Type: Report from Study
  Country: KR (occurrence: KR)
  Receive Date: 20200110
  Receipt Date: 20200304
  Transmission Date: 20200409
  Serious: Yes (Hospitalization, Other)
  Sender: FDA-Public Use
  Company Number: KR-DSJP-DSE-2018-139115

PATIENT

DRUGS (7)
  1. OTHER ANTITHYROID PREPARATIONS [Concomitant]
     Indication: THYROID DISORDER
     Dosage: UNK
  2. ACE INHIBITORS [Concomitant]
     Active Substance: UNSPECIFIED INGREDIENT
     Indication: HYPERTENSION
     Dosage: UNK
  3. BETA BLOCKING AGENTS [Concomitant]
     Active Substance: UNSPECIFIED INGREDIENT
     Indication: HYPERTENSION
     Dosage: UNK
  4. ANTIARRHYTHMIC AGENTS [Concomitant]
     Active Substance: UNSPECIFIED INGREDIENT
     Indication: ATRIAL FIBRILLATION
     Dosage: UNK, QD
     Dates: start: 20120907
  5. EDOXABAN [Suspect]
     Active Substance: EDOXABAN TOSYLATE
     Dosage: 60 UNK
     Route: 048
     Dates: start: 20170930
  6. ORAL ANTIDIABETICS [Concomitant]
     Active Substance: UNSPECIFIED INGREDIENT
     Indication: DIABETES MELLITUS
     Dosage: UNK
  7. EDOXABAN [Suspect]
     Active Substance: EDOXABAN TOSYLATE
     Indication: ATRIAL FIBRILLATION
     Dosage: 60 MG, QD
     Route: 048
     Dates: start: 20170315, end: 20170925

REACTIONS (1)
  - Gastric adenoma [Recovered/Resolved]

NARRATIVE: CASE EVENT DATE: 20170926
